FAERS Safety Report 12069570 (Version 4)
Quarter: 2016Q2

REPORT INFORMATION
  Report Type: Spontaneous
  Country: FR (occurrence: FR)
  Receive Date: 20160211
  Receipt Date: 20160509
  Transmission Date: 20160815
  Serious: Yes (Life-Threatening, Hospitalization, Other)
  Sender: FDA-Public Use
  Company Number: FR-TEVA-633027ISR

PATIENT
  Age: 40 Year
  Sex: Male

DRUGS (5)
  1. METHOTREXATE [Suspect]
     Active Substance: METHOTREXATE
     Dosage: 1.4286 MILLIGRAM DAILY; 10 MG/WEEK
     Route: 048
  2. METHOTREXATE [Suspect]
     Active Substance: METHOTREXATE
     Dates: start: 201402
  3. FOLIC ACID. [Concomitant]
     Active Substance: FOLIC ACID
     Dosage: 72 HOURS AFTER INJECTION OF METHOTREXATE
  4. METHOTREXATE [Suspect]
     Active Substance: METHOTREXATE
     Indication: RHEUMATOID ARTHRITIS
     Dosage: 10 MILLIGRAM DAILY;
     Route: 030
     Dates: start: 2011
  5. PREDNISOLONE. [Concomitant]
     Active Substance: PREDNISOLONE
     Dosage: 10 MILLIGRAM DAILY;

REACTIONS (10)
  - Dehydration [Recovered/Resolved]
  - Diarrhoea [Recovered/Resolved]
  - Apoptotic colonopathy [Recovered/Resolved]
  - Hyponatraemia [Recovered/Resolved]
  - Gastrointestinal toxicity [Recovered/Resolved]
  - Hypovolaemic shock [Recovered/Resolved]
  - Hypokalaemia [Recovered/Resolved]
  - Gastrointestinal disorder [Recovered/Resolved]
  - Colitis [Recovered/Resolved]
  - Acute kidney injury [Recovered/Resolved]
